FAERS Safety Report 13624582 (Version 1)
Quarter: 2017Q2

REPORT INFORMATION
  Report Type: Spontaneous
  Country: US (occurrence: US)
  Receive Date: 20170608
  Receipt Date: 20170608
  Transmission Date: 20170830
  Serious: No
  Sender: FDA-Public Use
  Company Number: US-PFIZER INC-2017247396

PATIENT
  Age: 85 Year
  Sex: Female
  Weight: 55 kg

DRUGS (7)
  1. CALCIUM MAGNESIUM + VITAMIN D3 [Concomitant]
     Indication: BONE DISORDER
     Dosage: ONE TABLET BY MOUTH ONCE A DAY
     Route: 048
  2. LEVOTHYROXINE. [Concomitant]
     Active Substance: LEVOTHYROXINE
     Indication: THYROID THERAPY
     Dosage: 75 MCG TABLET BY MOUTH EVERY OTHER DAY
     Route: 048
     Dates: start: 1992
  3. PREMARIN [Suspect]
     Active Substance: ESTROGENS, CONJUGATED
     Indication: HYSTERECTOMY
     Dosage: 0.9 MG, UNK
     Route: 048
     Dates: start: 1994
  4. DONEPEZIL. [Concomitant]
     Active Substance: DONEPEZIL
     Indication: DEMENTIA ALZHEIMER^S TYPE
     Dosage: 10 MG, 1X/DAY(10 MG TABLET BY MOUTH ONCE A DAY AT NIGHT)
     Route: 048
     Dates: start: 201611
  5. PAROXETINE. [Concomitant]
     Active Substance: PAROXETINE
     Indication: ANXIETY
     Dosage: TABLET BY MOUTH ONCE A DAY
     Route: 048
     Dates: start: 201705
  6. ASPIRIN 81 [Concomitant]
     Active Substance: ASPIRIN
     Dosage: 1 DF, 1X/DAY(81 MG TABLET BY MOUTH ONCE A DAY)
     Route: 048
  7. VITAMIN D /00107901/ [Concomitant]
     Active Substance: ERGOCALCIFEROL
     Indication: BONE DISORDER
     Dosage: 400 IU, 1X/DAY(ONE 400 IU TABLET BY MOUTH ONCE A DAY)
     Route: 048

REACTIONS (1)
  - Hot flush [Unknown]
